FAERS Safety Report 11004263 (Version 1)
Quarter: 2015Q2

REPORT INFORMATION
  Report Type: Spontaneous
  Country: GB (occurrence: None)
  Receive Date: 20150407
  Receipt Date: 20150407
  Transmission Date: 20150821
  Serious: Yes (Other)
  Sender: FDA-Public Use
  Company Number: COL_19490_2015

PATIENT
  Age: 4 Year
  Sex: Female

DRUGS (2)
  1. COLGATE DURAPHAT [Suspect]
     Active Substance: SODIUM FLUORIDE
     Indication: DENTAL CARIES
     Route: 048
     Dates: start: 20150305
  2. COLGATE DURAPHAT [Suspect]
     Active Substance: SODIUM FLUORIDE
     Indication: DENTAL DISORDER PROPHYLAXIS
     Route: 048
     Dates: start: 20150305

REACTIONS (4)
  - Lip swelling [None]
  - Malaise [None]
  - Emotional distress [None]
  - Application site swelling [None]

NARRATIVE: CASE EVENT DATE: 20150305
